FAERS Safety Report 24750514 (Version 1)
Quarter: 2024Q4

REPORT INFORMATION
  Report Type: Spontaneous
  Country: US (occurrence: US)
  Receive Date: 20241218
  Receipt Date: 20241218
  Transmission Date: 20250115
  Serious: No
  Sender: ABBVIE
  Company Number: US-ABBVIE-6047869

PATIENT
  Age: 21 Year
  Sex: Male

DRUGS (2)
  1. RINVOQ [Suspect]
     Active Substance: UPADACITINIB
     Indication: Colitis ulcerative
     Dosage: FOR TWO MONTHS
     Route: 048
     Dates: start: 202410, end: 202412
  2. RINVOQ [Suspect]
     Active Substance: UPADACITINIB
     Indication: Colitis ulcerative
     Dosage: FOR TWO MONTHS
     Route: 048
     Dates: start: 20241210

REACTIONS (1)
  - Faecal calprotectin increased [Unknown]

NARRATIVE: CASE EVENT DATE: 20240101
